FAERS Safety Report 19583642 (Version 7)
Quarter: 2025Q4

REPORT INFORMATION
  Report Type: Report from Study
  Country: US (occurrence: US)
  Receive Date: 20210720
  Receipt Date: 20251221
  Transmission Date: 20260117
  Serious: Yes (Other)
  Sender: PFIZER
  Company Number: US-PFIZER INC-2021514936

PATIENT
  Age: 67 Year
  Sex: Female
  Weight: 52.16 kg

DRUGS (3)
  1. IBRANCE [Suspect]
     Active Substance: PALBOCICLIB
     Indication: Neoplasm malignant
     Dosage: 100 MG, CYCLIC, FOR 21 DAYS
     Route: 048
  2. IBRANCE [Suspect]
     Active Substance: PALBOCICLIB
     Indication: Breast cancer metastatic
     Dosage: 100 MG
  3. ASCORBIC ACID [Concomitant]
     Active Substance: ASCORBIC ACID
     Dosage: UNK
     Route: 065

REACTIONS (10)
  - Metastases to liver [Unknown]
  - Aphthous ulcer [Unknown]
  - Weight decreased [Unknown]
  - Oropharyngeal pain [Unknown]
  - Hypersensitivity [Unknown]
  - Nocturia [Unknown]
  - Sleep disorder [Unknown]
  - Illness [Unknown]
  - Nasopharyngitis [Unknown]
  - Stomatitis [Unknown]
